FAERS Safety Report 4777502-1 (Version None)
Quarter: 2005Q3

REPORT INFORMATION
  Report Type: 
  Country: None (occurrence: None)
  Receive Date: 20050915
  Receipt Date: 20050907
  Transmission Date: 20060218
  Serious: Yes (Other)
  Sender: FDA-Public Use
  Company Number: HQWYE336309SEP05

PATIENT
  Sex: Female

DRUGS (3)
  1. EFFEXOR XR [Suspect]
     Indication: POSTPARTUM DEPRESSION
     Dosage: SEE IMAGE
     Dates: start: 20050201, end: 20050101
  2. EFFEXOR XR [Suspect]
     Indication: POSTPARTUM DEPRESSION
     Dosage: SEE IMAGE
     Dates: start: 20040501, end: 20050201
  3. EFFEXOR XR [Suspect]
     Indication: POSTPARTUM DEPRESSION
     Dosage: SEE IMAGE
     Dates: start: 20050101, end: 20050319

REACTIONS (10)
  - ABORTION SPONTANEOUS [None]
  - DRUG EXPOSURE DURING PREGNANCY [None]
  - DRUG WITHDRAWAL SYNDROME [None]
  - FEELING ABNORMAL [None]
  - HEADACHE [None]
  - PALPITATIONS [None]
  - RASH PRURITIC [None]
  - THERAPEUTIC RESPONSE UNEXPECTED [None]
  - TINNITUS [None]
  - VERTIGO [None]
